FAERS Safety Report 6992418-8 (Version None)
Quarter: 2010Q3

REPORT INFORMATION
  Report Type: 
  Country: None (occurrence: None)
  Receive Date: 20100917
  Receipt Date: 20100902
  Transmission Date: 20110219
  Serious: Yes (Hospitalization, Other)
  Sender: FDA-Public Use
  Company Number: PHHY2010US59419

PATIENT
  Sex: Female
  Weight: 104 kg

DRUGS (18)
  1. CGP 57148B T35717+ [Suspect]
     Indication: CHRONIC MYELOID LEUKAEMIA
     Dosage: 400 MG DAILY
     Dates: start: 20100623, end: 20100831
  2. DIOVAN [Concomitant]
     Dosage: 80 MG DAILY
  3. COREG [Concomitant]
     Dosage: 25 MG, BID
  4. ENALAPRIL [Concomitant]
     Dosage: 10 MG DAILY
  5. PREVACID [Concomitant]
     Dosage: 30 MG, UNK
  6. CRESTOR [Concomitant]
     Dosage: 20 MG, UNK
  7. COMBIVENT [Concomitant]
     Dosage: 2 PUFFS PRN
  8. FLONASE [Concomitant]
     Dosage: 1 PUFF EA NOSTRIL DAILY
  9. SYNTHROID [Concomitant]
     Dosage: 100 UG, BID
     Route: 048
  10. ADVAIR DISKUS 100/50 [Concomitant]
     Dosage: 250 UNK, BID
  11. ADVAIR DISKUS 100/50 [Concomitant]
     Dosage: 50 UNK, BID
  12. SPIRIVA [Concomitant]
     Dosage: 18 MCG DAILY
  13. XOPENEX [Concomitant]
     Dosage: NEBS Q6
  14. DARVOCET-N 100 [Concomitant]
     Dosage: 100 Q4
  15. CLARITIN [Concomitant]
     Dosage: 10 MG DAILY
     Route: 048
  16. ULTRAM [Concomitant]
     Dosage: 2 DF, Q6H
     Route: 048
  17. ATROVENT [Concomitant]
     Dosage: 2 PUFF IH BID
  18. COMPAZINE [Concomitant]
     Dosage: 10 MG PER ORAL EVERY 6-8 HRS PRN

REACTIONS (30)
  - ASTHENIA [None]
  - ASTHMA [None]
  - ATRIAL FIBRILLATION [None]
  - CARDIAC FAILURE CONGESTIVE [None]
  - CORONARY ARTERY DISEASE [None]
  - CORONARY ARTERY OCCLUSION [None]
  - DECREASED ACTIVITY [None]
  - DYSPNOEA [None]
  - DYSPNOEA PAROXYSMAL NOCTURNAL [None]
  - DYSURIA [None]
  - GASTROOESOPHAGEAL REFLUX DISEASE [None]
  - GENERALISED OEDEMA [None]
  - HAEMORRHOIDS [None]
  - HYPOTENSION [None]
  - HYPOTHYROIDISM [None]
  - INSOMNIA [None]
  - LEUKOCYTOSIS [None]
  - LUNG INFILTRATION [None]
  - LUNG NEOPLASM [None]
  - MALAISE [None]
  - OEDEMA PERIPHERAL [None]
  - ORTHOPNOEA [None]
  - OSTEOARTHRITIS [None]
  - PERIORBITAL OEDEMA [None]
  - PLEURAL EFFUSION [None]
  - RENAL FAILURE [None]
  - SKIN LACERATION [None]
  - STENT PLACEMENT [None]
  - SWELLING FACE [None]
  - TROPONIN INCREASED [None]
